FAERS Safety Report 4853850-1 (Version None)
Quarter: 2005Q4

REPORT INFORMATION
  Report Type: 
  Country: None (occurrence: None)
  Receive Date: 20051213
  Receipt Date: 20051128
  Transmission Date: 20060501
  Serious: Yes (Hospitalization, Other)
  Sender: FDA-Public Use
  Company Number: US_0509122217

PATIENT
  Age: 58 Year
  Sex: Female
  Weight: 109.3 kg

DRUGS (22)
  1. ZYPREXA [Suspect]
     Indication: BIPOLAR I DISORDER
     Dosage: SEE IMAGE
     Route: 048
     Dates: start: 19981215, end: 19981215
  2. ZYPREXA [Suspect]
     Indication: BIPOLAR I DISORDER
     Dosage: SEE IMAGE
     Route: 048
     Dates: start: 19981216, end: 19981217
  3. ZYPREXA [Suspect]
     Indication: BIPOLAR I DISORDER
     Dosage: SEE IMAGE
     Route: 048
     Dates: start: 19981218, end: 20020501
  4. ZYPREXA [Suspect]
     Indication: BIPOLAR I DISORDER
     Dosage: SEE IMAGE
     Route: 048
     Dates: start: 20021107, end: 20021201
  5. ZYPREXA [Suspect]
     Indication: BIPOLAR I DISORDER
     Dosage: SEE IMAGE
     Route: 048
     Dates: start: 20030924, end: 20031028
  6. ZYPREXA [Suspect]
     Indication: BIPOLAR I DISORDER
     Dosage: SEE IMAGE
     Route: 048
     Dates: start: 20031029, end: 20031029
  7. ZYPREXA [Suspect]
     Indication: BIPOLAR I DISORDER
     Dosage: SEE IMAGE
     Route: 048
     Dates: start: 20031030, end: 20031202
  8. ZYPREXA [Suspect]
     Indication: BIPOLAR I DISORDER
     Dosage: SEE IMAGE
     Route: 048
     Dates: start: 20031203, end: 20031230
  9. ZYPREXA [Suspect]
     Indication: BIPOLAR I DISORDER
     Dosage: SEE IMAGE
     Route: 048
     Dates: start: 20040210, end: 20050801
  10. ZYPREXA [Suspect]
     Indication: BIPOLAR I DISORDER
     Dosage: SEE IMAGE
     Route: 048
     Dates: start: 20031231
  11. DEPAKOTE [Concomitant]
  12. SEROQUEL [Concomitant]
  13. XANAX [Concomitant]
  14. TOPAMAX [Concomitant]
  15. LIPITOR [Concomitant]
  16. ABILIFY [Concomitant]
  17. VIOXX [Concomitant]
  18. INDOCIN (INDOMETAHCIN) [Concomitant]
  19. AMBIEN [Concomitant]
  20. DIOVAN [Concomitant]
  21. SYNTHROID [Concomitant]
  22. VERAPAMIL [Concomitant]

REACTIONS (12)
  - BLOOD CHOLESTEROL ABNORMAL [None]
  - BLOOD CHOLESTEROL INCREASED [None]
  - BLOOD TRIGLYCERIDES INCREASED [None]
  - DEEP VEIN THROMBOSIS [None]
  - DIABETES MELLITUS [None]
  - HIGH DENSITY LIPOPROTEIN DECREASED [None]
  - HYPERGLYCAEMIA [None]
  - HYPERTENSION [None]
  - LOW DENSITY LIPOPROTEIN INCREASED [None]
  - PRESCRIBED OVERDOSE [None]
  - TREATMENT NONCOMPLIANCE [None]
  - WEIGHT INCREASED [None]
